FAERS Safety Report 5555939-0 (Version None)
Quarter: 2007Q4

REPORT INFORMATION
  Report Type: 
  Country: None (occurrence: None)
  Receive Date: 20071213
  Receipt Date: 20071204
  Transmission Date: 20080405
  Serious: Yes (Other)
  Sender: FDA-Public Use
  Company Number: SE-PFIZER INC-2007097240

PATIENT
  Sex: Female

DRUGS (4)
  1. DALACIN [Suspect]
     Indication: STAPHYLOCOCCAL INFECTION
     Dates: start: 20071118, end: 20071119
  2. TROMBYL [Concomitant]
     Route: 048
     Dates: start: 20040510
  3. LASIX [Concomitant]
     Dosage: DAILY DOSE:30MG
     Route: 048
     Dates: start: 20040510
  4. HERACILLIN [Concomitant]

REACTIONS (4)
  - DIZZINESS [None]
  - FEELING ABNORMAL [None]
  - HALLUCINATION [None]
  - NAUSEA [None]
